FAERS Safety Report 24749220 (Version 1)
Quarter: 2024Q4

REPORT INFORMATION
  Report Type: Spontaneous
  Country: CN (occurrence: CN)
  Receive Date: 20241218
  Receipt Date: 20241218
  Transmission Date: 20250114
  Serious: Yes (Hospitalization, Other)
  Sender: BAXTER
  Company Number: None

PATIENT
  Age: 17 Year
  Sex: Female
  Weight: 46 kg

DRUGS (9)
  1. CYCLOPHOSPHAMIDE [Suspect]
     Active Substance: CYCLOPHOSPHAMIDE
     Indication: Retroperitoneal cancer
     Dosage: 0.8 G, ONE TIME IN ONE DAY, DILUTED WITH 4: 1 GLUCOSE AND 250 ML OF 0.9% SODIUM CHLORIDE
     Route: 041
     Dates: start: 20241108, end: 20241108
  2. SODIUM CHLORIDE [Suspect]
     Active Substance: SODIUM CHLORIDE
     Indication: Medication dilution
     Dosage: 4: 1 GLUCOSE AND (0.9%) 250 ML, ONE TIME IN ONE DAY, USED TO DILUTE 0.8 G CYCLOPHOSPHAMIDE, INJECTIO
     Route: 041
     Dates: start: 20241108, end: 20241108
  3. SODIUM CHLORIDE [Suspect]
     Active Substance: SODIUM CHLORIDE
     Dosage: (0.9%) 250 ML, ONE TIME IN ONE DAY, USED TO DILUTE 20 MG EPIRUBICIN HYDROCHLORIDE, INJECTION
     Route: 041
     Dates: start: 20241109, end: 20241109
  4. SODIUM CHLORIDE [Suspect]
     Active Substance: SODIUM CHLORIDE
     Dosage: (0.9%) 500 ML, ONE TIME IN ONE DAY, USED TO DILUTE 0.07 G ETOPOSIDE, INJECTION
     Route: 041
     Dates: start: 20241110, end: 20241110
  5. SODIUM CHLORIDE [Suspect]
     Active Substance: SODIUM CHLORIDE
     Dosage: (0.9%) 500 ML, ONE TIME IN ONE DAY, USED TO DILUTE 60 MG CISPLATIN, INJECTION
     Route: 041
     Dates: start: 20241110, end: 20241110
  6. DEXTROSE [Suspect]
     Active Substance: DEXTROSE MONOHYDRATE
     Indication: Medication dilution
     Dosage: 4: 1 GLUCOSE AND (0.9%) 250 ML, ONE TIME IN ONE DAY, USED TO DILUTE 0.8 G CYCLOPHOSPHAMIDE
     Route: 041
     Dates: start: 20241108, end: 20241108
  7. ETOPOSIDE [Suspect]
     Active Substance: ETOPOSIDE
     Indication: Retroperitoneal cancer
     Dosage: 0.07 G, ONE TIME IN ONE DAY, DILUTED WITH 500 ML OF 0.9% SODIUM CHLORIDE
     Route: 041
     Dates: start: 20241108, end: 20241110
  8. EPIRUBICIN [Suspect]
     Active Substance: EPIRUBICIN
     Indication: Retroperitoneal cancer
     Dosage: 20 MG, ONE TIME IN ONE DAY, DILUTED WITH 250 ML OF 0.9% SODIUM CHLORIDE
     Route: 041
     Dates: start: 20241109, end: 20241109
  9. CISPLATIN [Suspect]
     Active Substance: CISPLATIN
     Indication: Retroperitoneal cancer
     Dosage: 60.000000 MG, QD
     Route: 041
     Dates: start: 20241110, end: 20241110

REACTIONS (1)
  - Myelosuppression [Recovering/Resolving]

NARRATIVE: CASE EVENT DATE: 20241112
